FAERS Safety Report 12109646 (Version 1)
Quarter: 2016Q1

REPORT INFORMATION
  Report Type: Spontaneous
  Country: US (occurrence: None)
  Receive Date: 20160222
  Receipt Date: 20160222
  Transmission Date: 20160526
  Serious: Yes (Hospitalization)
  Sender: FDA-Public Use
  Company Number: None

PATIENT
  Age: 87 Year
  Sex: Female
  Weight: 86.2 kg

DRUGS (6)
  1. HYDROCHLOROTHIAZIDE. [Concomitant]
     Active Substance: HYDROCHLOROTHIAZIDE
  2. MITOMYCIN C [Suspect]
     Active Substance: MITOMYCIN
     Indication: BLADDER CANCER
     Dosage: INSTILL FOR APPROX ONE HOUR ONE TIME BLADDER INSTILLATION
     Dates: start: 20150915
  3. PREDNISONE. [Concomitant]
     Active Substance: PREDNISONE
  4. DILTIAZEM [Concomitant]
     Active Substance: DILTIAZEM
  5. ELIQUIS [Concomitant]
     Active Substance: APIXABAN
  6. KCL [Concomitant]
     Active Substance: POTASSIUM CHLORIDE

REACTIONS (8)
  - Urogenital fistula [None]
  - Abdominal pain [None]
  - Extravasation [None]
  - Urinary incontinence [None]
  - Nausea [None]
  - Urinary bladder rupture [None]
  - Vomiting [None]
  - Bladder necrosis [None]

NARRATIVE: CASE EVENT DATE: 20150915
